FAERS Safety Report 9400425 (Version 2)
Quarter: 2013Q3

REPORT INFORMATION
  Report Type: Spontaneous
  Country: PL (occurrence: None)
  Receive Date: 20130711
  Receipt Date: 20130905
  Transmission Date: 20140515
  Serious: Yes (Hospitalization)
  Sender: FDA-Public Use
  Company Number: IBUP20130010

PATIENT
  Age: 38 Year
  Sex: Female

DRUGS (2)
  1. IBUPROFEN [Suspect]
     Indication: LIGAMENT SPRAIN
     Route: 048
  2. FLUDROCORTISONE [Concomitant]

REACTIONS (6)
  - Hypoaldosteronism [None]
  - Blood pressure decreased [None]
  - Paraesthesia oral [None]
  - Paraesthesia [None]
  - Hyperkalaemia [None]
  - Electrocardiogram QT shortened [None]
